FAERS Safety Report 22602115 (Version 1)
Quarter: 2023Q2

REPORT INFORMATION
  Report Type: Spontaneous
  Country: US (occurrence: None)
  Receive Date: 20230614
  Receipt Date: 20230614
  Transmission Date: 20230721
  Serious: Yes (Hospitalization)
  Sender: FDA-Public Use
  Company Number: None

PATIENT
  Sex: Female

DRUGS (1)
  1. DALFAMPRIDINE [Suspect]
     Active Substance: DALFAMPRIDINE
     Indication: Multiple sclerosis
     Dosage: 10MG TWICE DAILY ORAL?
     Route: 048
     Dates: start: 201810

REACTIONS (4)
  - Bladder disorder [None]
  - Urinary tract infection [None]
  - Back pain [None]
  - White blood cell count increased [None]
